FAERS Safety Report 9011796 (Version 1)
Quarter: 2013Q1

REPORT INFORMATION
  Report Type: Spontaneous
  Country: US (occurrence: US)
  Receive Date: 20130113
  Receipt Date: 20130113
  Transmission Date: 20140127
  Serious: Yes (Other)
  Sender: FDA-Public Use
  Company Number: US-009507513-0902USA00789

PATIENT
  Age: 11 Year
  Sex: Female
  Weight: 40.82 kg

DRUGS (1)
  1. SINGULAIR [Suspect]
     Indication: HYPERSENSITIVITY
     Dosage: 5 MG, QD
     Route: 048
     Dates: start: 20060322, end: 20080721

REACTIONS (2)
  - Panic attack [Unknown]
  - Anxiety [Unknown]
